FAERS Safety Report 23975681 (Version 2)
Quarter: 2024Q4

REPORT INFORMATION
  Report Type: Spontaneous
  Country: US (occurrence: US)
  Receive Date: 20240614
  Receipt Date: 20241213
  Transmission Date: 20250115
  Serious: No
  Sender: SANOFI AVENTIS
  Company Number: US-SA-2024SA173384

PATIENT
  Age: 44 Year
  Sex: Female

DRUGS (1)
  1. FABRAZYME [Suspect]
     Active Substance: AGALSIDASE BETA
     Indication: Fabry^s disease
     Dosage: STRENGTH: 35MG DOSE: 70 MG, STRENGTH: 5MG DOSE: 20 MG, QOW
     Route: 042
     Dates: start: 202401

REACTIONS (4)
  - Contrast media allergy [Unknown]
  - Nasopharyngitis [Unknown]
  - Hypotension [Unknown]
  - Drug specific antibody present [Unknown]

NARRATIVE: CASE EVENT DATE: 20240522
